FAERS Safety Report 5461395-3 (Version None)
Quarter: 2007Q3

REPORT INFORMATION
  Report Type: 
  Country: None (occurrence: None)
  Receive Date: 20070920
  Receipt Date: 20061003
  Transmission Date: 20080115
  Serious: No
  Sender: FDA-Public Use
  Company Number: A0622088A

PATIENT
  Age: 45 Year
  Sex: Female

DRUGS (1)
  1. ABREVA [Suspect]
     Dates: start: 20060920

REACTIONS (4)
  - LIP DISORDER [None]
  - LIP DRY [None]
  - SCAB [None]
  - SKIN INDURATION [None]
